FAERS Safety Report 8190360-0 (Version None)
Quarter: 2012Q1

REPORT INFORMATION
  Report Type: 
  Country: None (occurrence: None)
  Receive Date: 20120307
  Receipt Date: 20120229
  Transmission Date: 20120608
  Serious: Yes (Other)
  Sender: FDA-Public Use
  Company Number: FR-PFIZER INC-2012054946

PATIENT
  Age: 59 Year
  Sex: Female

DRUGS (1)
  1. LYRICA [Suspect]
     Indication: FIBROMYALGIA
     Dosage: 225 MG DAILY

REACTIONS (4)
  - DIARRHOEA [None]
  - THROAT IRRITATION [None]
  - PHARYNGEAL OEDEMA [None]
  - DYSPHAGIA [None]
